FAERS Safety Report 23996715 (Version 1)
Quarter: 2024Q2

REPORT INFORMATION
  Report Type: Spontaneous
  Country: US (occurrence: US)
  Receive Date: 20240620
  Receipt Date: 20240620
  Transmission Date: 20240715
  Serious: Yes (Other)
  Sender: FDA-Public Use
  Company Number: US-BIOGEN-2024BI01270255

PATIENT
  Age: 29 Year
  Sex: Female

DRUGS (2)
  1. ZURZUVAE [Suspect]
     Active Substance: ZURANOLONE
     Indication: Perinatal depression
     Route: 050
     Dates: start: 20240601
  2. ZOLOFT [Concomitant]
     Active Substance: SERTRALINE HYDROCHLORIDE
     Indication: Product used for unknown indication
     Route: 050
     Dates: start: 20240410

REACTIONS (6)
  - Suicidal ideation [Unknown]
  - Initial insomnia [Unknown]
  - Feeding disorder [Unknown]
  - Depression [Unknown]
  - Tachyphrenia [Unknown]
  - Anxiety [Unknown]

NARRATIVE: CASE EVENT DATE: 20240612
